FAERS Safety Report 8208141-8 (Version None)
Quarter: 2012Q1

REPORT INFORMATION
  Report Type: 
  Country: None (occurrence: None)
  Receive Date: 20120314
  Receipt Date: 20120307
  Transmission Date: 20120608
  Serious: Yes (Other)
  Sender: FDA-Public Use
  Company Number: PHHY2010US75536

PATIENT
  Sex: Male

DRUGS (2)
  1. EXJADE [Suspect]
     Indication: MYELODYSPLASTIC SYNDROME
     Dosage: 2000 MG, DAILY
     Route: 048
  2. SIMVASTATIN [Concomitant]
     Dosage: 40 MG, DAILY
     Route: 048
     Dates: start: 20080101

REACTIONS (11)
  - SPLENOMEGALY [None]
  - ASCITES [None]
  - PAIN [None]
  - LIVER DISORDER [None]
  - MALAISE [None]
  - WEIGHT FLUCTUATION [None]
  - BACK PAIN [None]
  - PORTAL HYPERTENSION [None]
  - OEDEMA PERIPHERAL [None]
  - HEPATIC CIRRHOSIS [None]
  - CHOLELITHIASIS [None]
